FAERS Safety Report 6970051-1 (Version None)
Quarter: 2010Q3

REPORT INFORMATION
  Report Type: 
  Country: None (occurrence: None)
  Receive Date: 20100908
  Receipt Date: 20100830
  Transmission Date: 20110219
  Serious: Yes (Other)
  Sender: FDA-Public Use
  Company Number: AT-ASTRAZENECA-2010SE40827

PATIENT
  Age: 785 Month
  Sex: Female
  Weight: 85 kg

DRUGS (3)
  1. ARIMIDEX [Suspect]
     Indication: BREAST CANCER
     Route: 048
     Dates: start: 20070201
  2. ARIMIDEX [Suspect]
     Route: 048
     Dates: start: 20090528
  3. CONCOR [Concomitant]
     Indication: HYPERTENSION
     Route: 048
     Dates: start: 20010518

REACTIONS (1)
  - MEMORY IMPAIRMENT [None]
